FAERS Safety Report 6129771 (Version 29)
Quarter: 2013Q4

REPORT INFORMATION
  Report Type: Spontaneous
  Country: US (occurrence: US)
  Receive Date: 20060918
  Receipt Date: 20131002
  Transmission Date: 20140711
  Serious: Yes (Death, Other)
  Sender: FDA-Public Use
  Company Number: PHEH2006US11386

PATIENT
  Age: 57 Year
  Sex: Female
  Weight: 96 kg

DRUGS (22)
  1. ZOMETA [Suspect]
     Indication: BREAST CANCER
     Route: 042
     Dates: end: 20100811
  2. ZOMETA [Suspect]
     Indication: METASTASES TO BONE
  3. ZOMETA [Suspect]
     Indication: METASTASES TO CENTRAL NERVOUS SYSTEM
  4. CHEMOTHERAPEUTICS NOS [Concomitant]
  5. DIGOXIN [Concomitant]
  6. ZOCOR ^DIECKMANN^ [Concomitant]
  7. LASIX [Concomitant]
     Indication: CARDIAC FAILURE CONGESTIVE
  8. COUMADIN ^BOOTS^ [Concomitant]
  9. DECADRON                                /CAN/ [Concomitant]
     Dosage: 4 MG, QID
  10. DECADRON                                /CAN/ [Concomitant]
     Dosage: 4 MG, TID
  11. DECADRON                                /CAN/ [Concomitant]
     Dosage: 4 MG, BID
  12. NAVELBINE ^ASTA MEDICA^ [Concomitant]
  13. DILANTIN                                /AUS/ [Concomitant]
  14. COREG [Concomitant]
  15. LISINOPRIL [Concomitant]
  16. FEMARA [Concomitant]
  17. HERCEPTIN ^GENENTECH^ [Concomitant]
  18. TECHNETIUM (99M TC) DMSA [Concomitant]
  19. PROCRIT                            /00909301/ [Concomitant]
  20. COLACE [Concomitant]
  21. PRILOSEC [Concomitant]
  22. KEPPRA [Concomitant]

REACTIONS (164)
  - Brain mass [Unknown]
  - Nervous system disorder [Unknown]
  - Cerebral microangiopathy [Unknown]
  - Bone lesion [Unknown]
  - Pleural effusion [Unknown]
  - Bronchial wall thickening [Unknown]
  - Respiratory disorder [Unknown]
  - Cataract [Unknown]
  - Upper limb fracture [Unknown]
  - Tooth loss [Unknown]
  - Actinomycosis [Unknown]
  - Fibrosis [Unknown]
  - Hyperlipidaemia [Unknown]
  - Hypotension [Unknown]
  - Ataxia [Unknown]
  - Blister [Unknown]
  - Tooth fracture [Unknown]
  - Loose tooth [Unknown]
  - Gingival bleeding [Unknown]
  - Gastric ulcer [Unknown]
  - Osteitis [Unknown]
  - Pain in jaw [Unknown]
  - Candida infection [Unknown]
  - Alpha haemolytic streptococcal infection [Unknown]
  - Mental status changes [Unknown]
  - Adrenal adenoma [Unknown]
  - Death [Fatal]
  - Malignant neoplasm progression [Unknown]
  - Metastases to lung [Unknown]
  - Herpes zoster oticus [Unknown]
  - VIIth nerve paralysis [Unknown]
  - Hepatic lesion [Unknown]
  - Localised intraabdominal fluid collection [Unknown]
  - Metastases to bone [Unknown]
  - Skin exfoliation [Unknown]
  - Uterine leiomyoma [Unknown]
  - Paraesthesia [Unknown]
  - Gait disturbance [Unknown]
  - Spinal osteoarthritis [Unknown]
  - Osteonecrosis of jaw [Unknown]
  - Pain [Unknown]
  - Deformity [Unknown]
  - Hypophagia [Unknown]
  - Emotional distress [Unknown]
  - Anxiety [Unknown]
  - General physical health deterioration [Unknown]
  - Decreased interest [Unknown]
  - Life expectancy shortened [Unknown]
  - Carcinoembryonic antigen increased [Unknown]
  - Metastases to central nervous system [Unknown]
  - Back pain [Unknown]
  - Pain in extremity [Unknown]
  - Cholelithiasis [Unknown]
  - Hepatomegaly [Unknown]
  - Hepatic steatosis [Unknown]
  - Intervertebral disc degeneration [Unknown]
  - Intervertebral disc protrusion [Unknown]
  - Pulmonary mass [Unknown]
  - Brain oedema [Unknown]
  - Osteitis deformans [Unknown]
  - Central nervous system lesion [Unknown]
  - Spondylolysis [Unknown]
  - Metastases to lymph nodes [Unknown]
  - Cholecystitis chronic [Unknown]
  - Haematuria [Unknown]
  - Bone pain [Unknown]
  - Balance disorder [Unknown]
  - Pelvic fracture [Unknown]
  - Type 2 diabetes mellitus [Unknown]
  - Cardiomyopathy [Unknown]
  - Left ventricular dysfunction [Unknown]
  - Mitral valve incompetence [Unknown]
  - Cardiac failure congestive [Unknown]
  - Respiratory failure [Unknown]
  - Pneumonia [Unknown]
  - Renal failure [Unknown]
  - Bronchitis [Unknown]
  - Sinus tachycardia [Unknown]
  - Oral disorder [Unknown]
  - Osteopenia [Unknown]
  - Gastrooesophageal reflux disease [Unknown]
  - Rash erythematous [Unknown]
  - Rash pruritic [Unknown]
  - Headache [Unknown]
  - Head discomfort [Unknown]
  - Fatigue [Unknown]
  - Dizziness [Unknown]
  - Osteosclerosis [Unknown]
  - Skin hyperpigmentation [Unknown]
  - Fungal infection [Unknown]
  - Oropharyngeal discomfort [Unknown]
  - Dysphagia [Unknown]
  - Vision blurred [Unknown]
  - Presyncope [Unknown]
  - Abdomen crushing [Unknown]
  - Axillary pain [Unknown]
  - Swelling face [Unknown]
  - Alopecia [Recovering/Resolving]
  - Insomnia [Unknown]
  - Arthralgia [Unknown]
  - Ear discomfort [Recovered/Resolved]
  - Muscle spasms [Unknown]
  - Escherichia test positive [Unknown]
  - Dyspnoea [Unknown]
  - Diverticulum intestinal [Unknown]
  - Haemorrhoids [Unknown]
  - Oedema peripheral [Unknown]
  - Muscle twitching [Unknown]
  - Deep vein thrombosis [Unknown]
  - Infection [Unknown]
  - Lymphoedema [Unknown]
  - Ventricular extrasystoles [Unknown]
  - Peripheral vascular disorder [Unknown]
  - Wound infection [Unknown]
  - Depression [Unknown]
  - Nodule [Unknown]
  - Atelectasis [Unknown]
  - Arteriosclerosis coronary artery [Unknown]
  - Aortic calcification [Unknown]
  - Vasogenic cerebral oedema [Unknown]
  - Vestibular disorder [Unknown]
  - Nasal mucosal disorder [Unknown]
  - Facial nerve disorder [Unknown]
  - Lower motor neurone lesion [Unknown]
  - Herpes zoster [Unknown]
  - Hypogeusia [Unknown]
  - Rash [Unknown]
  - Scab [Unknown]
  - Mastication disorder [Unknown]
  - Oral pain [Unknown]
  - Hypoaesthesia oral [Unknown]
  - Osteomyelitis [Unknown]
  - Subcutaneous abscess [Unknown]
  - Venous occlusion [Unknown]
  - Fall [Unknown]
  - Craniocerebral injury [Unknown]
  - Loss of consciousness [Unknown]
  - Exposed bone in jaw [Unknown]
  - Connective tissue inflammation [Unknown]
  - Dental fistula [Unknown]
  - Anaemia [Unknown]
  - Jaw fracture [Unknown]
  - Primary sequestrum [Unknown]
  - Sinus bradycardia [Unknown]
  - Osteoarthritis [Unknown]
  - Pathological fracture [Unknown]
  - Lip pain [Unknown]
  - Cheilitis [Unknown]
  - Glossodynia [Unknown]
  - Glossitis [Unknown]
  - Wound dehiscence [Unknown]
  - Mouth haemorrhage [Unknown]
  - Bone swelling [Unknown]
  - Oral discharge [Unknown]
  - Abscess jaw [Unknown]
  - Atrophy [Unknown]
  - Soft tissue disorder [Unknown]
  - Osteolysis [Unknown]
  - Bone fragmentation [Unknown]
  - Lymphadenopathy [Unknown]
  - Muscle disorder [Unknown]
  - Lung disorder [Unknown]
  - Oedema [Unknown]
  - Exophthalmos [Unknown]
